FAERS Safety Report 12640064 (Version 5)
Quarter: 2017Q1

REPORT INFORMATION
  Report Type: Report from Study
  Country: GB (occurrence: GB)
  Receive Date: 20160810
  Receipt Date: 20170213
  Transmission Date: 20170428
  Serious: Yes (Other)
  Sender: FDA-Public Use
  Company Number: GB-BRISTOL-MYERS SQUIBB COMPANY-BMS-2016-048737

PATIENT
  Sex: Female

DRUGS (1)
  1. ABATACEPT [Suspect]
     Active Substance: ABATACEPT
     Indication: RHEUMATOID ARTHRITIS
     Dosage: 125 MG, QWK
     Route: 058
     Dates: start: 20151124

REACTIONS (10)
  - Infection [Unknown]
  - Nasopharyngitis [Unknown]
  - Ear infection [Not Recovered/Not Resolved]
  - Hypertension [Unknown]
  - Anaemia [Unknown]
  - Drug dose omission [Unknown]
  - Influenza [Unknown]
  - Tooth disorder [Unknown]
  - Brain operation [Unknown]
  - Blood test abnormal [Unknown]
